FAERS Safety Report 11097023 (Version 1)
Quarter: 2015Q2

REPORT INFORMATION
  Report Type: Spontaneous
  Country: FR (occurrence: FR)
  Receive Date: 20150507
  Receipt Date: 20150507
  Transmission Date: 20150821
  Serious: Yes (Death, Hospitalization, Other)
  Sender: FDA-Public Use
  Company Number: FR-ELI_LILLY_AND_COMPANY-FR201504010095

PATIENT
  Age: 60 Year
  Sex: Male

DRUGS (8)
  1. MIRTAZAPINE. [Suspect]
     Active Substance: MIRTAZAPINE
     Indication: ANXIETY
     Dosage: UNK
     Route: 048
     Dates: start: 20150104, end: 20150104
  2. LOXAPAC                            /00401801/ [Suspect]
     Active Substance: LOXAPINE SUCCINATE
     Indication: ANXIETY
     Dosage: 100 MG, QD
     Route: 030
     Dates: start: 20141217, end: 20141217
  3. DEROXAT [Suspect]
     Active Substance: PAROXETINE HYDROCHLORIDE
     Indication: ANXIETY
     Dosage: UNK, UNKNOWN
     Route: 065
     Dates: start: 201412
  4. TIAPRIDAL                          /00435701/ [Suspect]
     Active Substance: TIAPRIDE HYDROCHLORIDE
     Indication: ANXIETY
     Dosage: 1 DF, QD
     Route: 030
     Dates: start: 20141221, end: 20141221
  5. ZYPREXA [Suspect]
     Active Substance: OLANZAPINE
     Indication: PRODUCT USED FOR UNKNOWN INDICATION
     Dosage: UNK
     Route: 048
     Dates: start: 201412
  6. DIHYDROERGOTAMINE [Suspect]
     Active Substance: DIHYDROERGOTAMINE
     Dosage: 300 GTT, TID
     Route: 048
     Dates: start: 1985, end: 20150103
  7. XANAX [Concomitant]
     Active Substance: ALPRAZOLAM
     Dosage: UNK, UNKNOWN
     Route: 065
  8. DIAZEPAM. [Concomitant]
     Active Substance: DIAZEPAM
     Dosage: UNK, UNKNOWN
     Route: 065

REACTIONS (25)
  - Ergot poisoning [Fatal]
  - Phobia [Fatal]
  - Bronchiectasis [Unknown]
  - Electroencephalogram abnormal [Unknown]
  - Post-traumatic stress disorder [Fatal]
  - Abnormal behaviour [Fatal]
  - Pulmonary congestion [Unknown]
  - Eyelid function disorder [Unknown]
  - Muscle rigidity [Fatal]
  - Generalised tonic-clonic seizure [Recovered/Resolved]
  - Eschar [Not Recovered/Not Resolved]
  - Gangrene [Fatal]
  - Blood creatine phosphokinase increased [Fatal]
  - Seizure [Fatal]
  - Status epilepticus [Fatal]
  - Pyrexia [Fatal]
  - General physical health deterioration [Not Recovered/Not Resolved]
  - Agitation [Unknown]
  - Dehydration [Unknown]
  - Altered state of consciousness [Not Recovered/Not Resolved]
  - Neuroleptic malignant syndrome [Fatal]
  - Respiratory disorder [Unknown]
  - Hallucination [Unknown]
  - Hyperthermia [Unknown]
  - Disturbance in attention [Unknown]

NARRATIVE: CASE EVENT DATE: 20141221
